FAERS Safety Report 9276141 (Version 1)
Quarter: 2013Q1

REPORT INFORMATION
  Report Type: Spontaneous
  Country: DE (occurrence: None)
  Receive Date: 20121109
  Receipt Date: 20121109
  Transmission Date: 20140127
  Serious: Yes (Life-Threatening, Hospitalization, Other)
  Sender: FDA-Public Use
  Company Number: 2012S1000119

PATIENT
  Age: 48 Year
  Sex: Male
  Weight: 87 kg

DRUGS (10)
  1. CUBICIN (DAPTOMYCIN) [Suspect]
     Indication: ENDOCARDITIS STAPHYLOCOCCAL
     Route: 042
     Dates: start: 201108, end: 201108
  2. RIFAMPICIN [Suspect]
     Route: 042
  3. STAPHYLEX [Suspect]
     Indication: ENDOCARDITIS
     Dates: start: 20110720, end: 20110804
  4. CEFUROXIME [Concomitant]
  5. OXACILLIN [Concomitant]
  6. AMIODARONE [Concomitant]
  7. MAGNESIUM HYDROGEN [Concomitant]
  8. ASPARTATE POTASSIUM [Concomitant]
  9. PANTOPRAZOLE SODIUM [Concomitant]
  10. HEPARIN [Concomitant]

REACTIONS (8)
  - Renal failure [None]
  - Implant site abscess [None]
  - Blood creatine phosphokinase increased [None]
  - Cardiogenic shock [None]
  - Endocarditis staphylococcal [None]
  - Drug ineffective [None]
  - Weight decreased [None]
  - Urine flow decreased [None]
